FAERS Safety Report 12876428 (Version 1)
Quarter: 2016Q4

REPORT INFORMATION
  Report Type: Spontaneous
  Country: US (occurrence: US)
  Receive Date: 20161021
  Receipt Date: 20161021
  Transmission Date: 20170207
  Serious: Yes (Disabling, Other)
  Sender: FDA-Public Use
  Company Number: None

PATIENT
  Age: 74 Year
  Sex: Female
  Weight: 83.25 kg

DRUGS (13)
  1. SPIRONOLACTONE. [Concomitant]
     Active Substance: SPIRONOLACTONE
  2. CALCEIUM - MAGNESIUM - D COMPLEX [Concomitant]
  3. VITAMIN B12 [Concomitant]
     Active Substance: CYANOCOBALAMIN
  4. A [Concomitant]
  5. RECLAST [Suspect]
     Active Substance: ZOLEDRONIC ACID
     Indication: OSTEOPOROSIS
     Dosage: ?          OTHER FREQUENCY:ONCE PER YEAR;OTHER ROUTE:IV INJECTION?
     Route: 042
     Dates: start: 20161018
  6. LORAZEPAM. [Concomitant]
     Active Substance: LORAZEPAM
  7. TRAZODONE [Concomitant]
     Active Substance: TRAZODONE HYDROCHLORIDE
  8. VALERIAN [Concomitant]
     Active Substance: VALERIAN
  9. VITAMIN B COMPLEX [Concomitant]
     Active Substance: CYANOCOBALAMIN\DEXPANTHENOL\NIACINAMIDE\PYRIDOXINE HYDROCHLORIDE\RIBOFLAVIN 5^-PHOSPHATE SODIUM\THIAMINE HYDROCHLORIDE\VITAMIN B COMPLEX
  10. RECLAST [Suspect]
     Active Substance: ZOLEDRONIC ACID
     Indication: COMPRESSION FRACTURE
     Dosage: ?          OTHER FREQUENCY:ONCE PER YEAR;OTHER ROUTE:IV INJECTION?
     Route: 042
     Dates: start: 20161018
  11. CARBONYL IRON [Concomitant]
     Active Substance: IRON
  12. MULTIVITAMIN [Concomitant]
     Active Substance: VITAMINS
  13. E [Concomitant]

REACTIONS (6)
  - Headache [None]
  - Drug ineffective [None]
  - Movement disorder [None]
  - Pain in extremity [None]
  - Jaw disorder [None]
  - Decreased appetite [None]

NARRATIVE: CASE EVENT DATE: 20161018
